FAERS Safety Report 5629103-0 (Version None)
Quarter: 2008Q1

REPORT INFORMATION
  Report Type: 
  Country: None (occurrence: None)
  Receive Date: 20080216
  Receipt Date: 20071218
  Transmission Date: 20080703
  Serious: Yes (Other)
  Sender: FDA-Public Use
  Company Number: US-PURDUE-USA_2007_0031650

PATIENT
  Sex: Male
  Weight: 100 kg

DRUGS (2)
  1. OXYCONTIN [Suspect]
     Indication: PAIN
     Dosage: 40 MG, BID
     Dates: start: 20010425, end: 20020501
  2. HYDROCODONE BITARTRATE [Concomitant]
     Indication: PAIN

REACTIONS (6)
  - DEHYDRATION [None]
  - MAJOR DEPRESSION [None]
  - PHAGOPHOBIA [None]
  - RENAL IMPAIRMENT [None]
  - VOMITING [None]
  - WEIGHT DECREASED [None]
